FAERS Safety Report 23309448 (Version 1)
Quarter: 2023Q4

REPORT INFORMATION
  Report Type: Spontaneous
  Country: US (occurrence: None)
  Receive Date: 20231215
  Receipt Date: 20231215
  Transmission Date: 20240109
  Serious: Yes (Hospitalization)
  Sender: FDA-Public Use
  Company Number: None

PATIENT

DRUGS (1)
  1. DUONEB [Suspect]
     Active Substance: ALBUTEROL SULFATE\IPRATROPIUM BROMIDE

REACTIONS (9)
  - Lethargy [None]
  - Confusional state [None]
  - Disorientation [None]
  - Hyponatraemia [None]
  - Chronic obstructive pulmonary disease [None]
  - Medication error [None]
  - Unresponsive to stimuli [None]
  - Inappropriate schedule of product administration [None]
  - Oxygen saturation decreased [None]

NARRATIVE: CASE EVENT DATE: 20231128
